FAERS Safety Report 9264837 (Version 1)
Quarter: 2013Q2

REPORT INFORMATION
  Report Type: Spontaneous
  Country: US (occurrence: None)
  Receive Date: 20130426
  Receipt Date: 20130426
  Transmission Date: 20140414
  Serious: Yes (Hospitalization)
  Sender: FDA-Public Use
  Company Number: ACO_35608_2013

PATIENT
  Age: 64 Year
  Sex: Female
  Weight: 81.6 kg

DRUGS (3)
  1. AMPYRA (DALFAMPRIDINE) TABLET, 10 MG [Suspect]
     Indication: MOVEMENT DISORDER
     Route: 048
     Dates: start: 20120515
  2. TYSABRI (NATALIZUMAB) [Concomitant]
  3. BACLOFEN (BACLOFEN) [Concomitant]

REACTIONS (2)
  - Lower limb fracture [None]
  - Fall [None]
